FAERS Safety Report 6986985-8 (Version None)
Quarter: 2010Q3

REPORT INFORMATION
  Report Type: 
  Country: None (occurrence: None)
  Receive Date: 20100916
  Receipt Date: 20100908
  Transmission Date: 20110219
  Serious: No
  Sender: FDA-Public Use
  Company Number: US-BIOGENIDEC-2010BI023287

PATIENT
  Age: 54 Year
  Sex: Female

DRUGS (9)
  1. TYSABRI [Suspect]
     Indication: MULTIPLE SCLEROSIS
     Route: 042
     Dates: start: 20100511, end: 20100511
  2. ASPIRIN [Concomitant]
  3. IBUPROFEN [Concomitant]
  4. PROZAC [Concomitant]
  5. MIRAPEX [Concomitant]
  6. FISH OIL [Concomitant]
  7. FLAXSEED OIL [Concomitant]
  8. PRIMROSE OIL [Concomitant]
  9. MULTI-VITAMIN [Concomitant]

REACTIONS (1)
  - URTICARIA [None]
